FAERS Safety Report 5557323-2 (Version None)
Quarter: 2007Q4

REPORT INFORMATION
  Report Type: 
  Country: None (occurrence: None)
  Receive Date: 20071214
  Receipt Date: 20071206
  Transmission Date: 20080405
  Serious: Yes (Hospitalization, Other)
  Sender: FDA-Public Use
  Company Number: US-ASTRAZENECA-2007UW27928

PATIENT
  Age: 54 Year
  Sex: Female

DRUGS (12)
  1. CRESTOR [Suspect]
     Route: 048
  2. NEURONTIN [Concomitant]
  3. NEXIUM [Concomitant]
  4. LISINOPRIL [Concomitant]
  5. LASIX [Concomitant]
  6. AVAPRO [Concomitant]
  7. LANTUS [Concomitant]
  8. LUMIGAN [Concomitant]
  9. COSOPT [Concomitant]
  10. CUBICIN [Concomitant]
  11. CEFTRIAXONE [Concomitant]
  12. NOVOLIN 50/50 [Concomitant]

REACTIONS (4)
  - BLOOD CREATINE PHOSPHOKINASE INCREASED [None]
  - MUSCULAR WEAKNESS [None]
  - PROTEINURIA [None]
  - URINE COLOUR ABNORMAL [None]
